FAERS Safety Report 13962849 (Version 1)
Quarter: 2017Q3

REPORT INFORMATION
  Report Type: Spontaneous
  Country: US (occurrence: None)
  Receive Date: 20170912
  Receipt Date: 20170912
  Transmission Date: 20171128
  Serious: No
  Sender: FDA-Public Use
  Company Number: None

PATIENT
  Age: 75 Year
  Sex: Female

DRUGS (1)
  1. IBRANCE [Suspect]
     Active Substance: PALBOCICLIB
     Indication: BREAST CANCER
     Route: 048
     Dates: start: 20170624

REACTIONS (4)
  - Memory impairment [None]
  - Night sweats [None]
  - Fatigue [None]
  - Influenza like illness [None]

NARRATIVE: CASE EVENT DATE: 20170911
